FAERS Safety Report 5577772-6 (Version None)
Quarter: 2007Q4

REPORT INFORMATION
  Report Type: 
  Country: None (occurrence: None)
  Receive Date: 20071231
  Receipt Date: 20071228
  Transmission Date: 20080405
  Serious: Yes (Death)
  Sender: FDA-Public Use
  Company Number: US-BRISTOL-MYERS SQUIBB COMPANY-14026504

PATIENT
  Age: 69 Year
  Sex: Male

DRUGS (1)
  1. COUMADIN [Suspect]

REACTIONS (3)
  - DEEP VEIN THROMBOSIS [None]
  - OBESITY [None]
  - RESPIRATORY FAILURE [None]
